FAERS Safety Report 11938689 (Version 2)
Quarter: 2016Q2

REPORT INFORMATION
  Report Type: Spontaneous
  Country: US (occurrence: US)
  Receive Date: 20160122
  Receipt Date: 20160513
  Transmission Date: 20160815
  Serious: No
  Sender: FDA-Public Use
  Company Number: US-BAYER-2016-009145

PATIENT
  Age: 49 Year
  Sex: Female

DRUGS (2)
  1. BETASERON [Suspect]
     Active Substance: INTERFERON BETA-1B
     Indication: MULTIPLE SCLEROSIS
     Dosage: 0.25 MG, QOD
     Route: 058
     Dates: start: 20130209
  2. BETASERON [Suspect]
     Active Substance: INTERFERON BETA-1B
     Indication: RELAPSING-REMITTING MULTIPLE SCLEROSIS
     Dosage: 8 MIU, QOD
     Route: 058
     Dates: start: 20041123

REACTIONS (9)
  - Injection site bruising [None]
  - Fatigue [None]
  - Injection site erythema [Recovered/Resolved with Sequelae]
  - Migraine [None]
  - Drug dose omission [None]
  - Injection site pain [Recovered/Resolved with Sequelae]
  - Injection site reaction [Recovered/Resolved with Sequelae]
  - Tremor [Not Recovered/Not Resolved]
  - Swelling [None]

NARRATIVE: CASE EVENT DATE: 20041123
